FAERS Safety Report 11146954 (Version 1)
Quarter: 2015Q2

REPORT INFORMATION
  Report Type: Spontaneous
  Country: US (occurrence: US)
  Receive Date: 20150528
  Receipt Date: 20150528
  Transmission Date: 20150821
  Serious: No
  Sender: FDA-Public Use
  Company Number: US-PURDUE-USA-2015-0120316

PATIENT
  Age: 66 Year
  Sex: Male

DRUGS (2)
  1. MORPHINE SULFATE (SIMILAR TO NDA 19-516) [Suspect]
     Active Substance: MORPHINE SULFATE
     Indication: PAIN
     Dosage: 60 MG, TID
     Route: 048
     Dates: start: 201410, end: 20141017
  2. MORPHINE SULFATE (SIMILAR TO NDA 19-516) [Suspect]
     Active Substance: MORPHINE SULFATE
     Dosage: 30 MG, TID
     Route: 048
     Dates: start: 20141017

REACTIONS (5)
  - Diarrhoea [Unknown]
  - Pain [Unknown]
  - Feeling abnormal [Recovered/Resolved]
  - Flatulence [Unknown]
  - Abdominal distension [Unknown]

NARRATIVE: CASE EVENT DATE: 201410
